FAERS Safety Report 10662188 (Version 1)
Quarter: 2014Q4

REPORT INFORMATION
  Report Type: Spontaneous
  Country: FR (occurrence: FR)
  Receive Date: 20141218
  Receipt Date: 20141218
  Transmission Date: 20150529
  Serious: Yes (Hospitalization)
  Sender: FDA-Public Use
  Company Number: FR-009507513-1412FRA007101

PATIENT
  Age: 35 Year
  Sex: Female

DRUGS (3)
  1. ORGALUTRAN [Suspect]
     Active Substance: GANIRELIX ACETATE
     Dosage: 1 DF, QD; STRENGTH 0.25MG/0.5ML
     Route: 058
     Dates: start: 20140414, end: 20140415
  2. OVITRELLE [Suspect]
     Active Substance: CHORIOGONADOTROPIN ALFA
     Dosage: 1 DF, ONCE
     Route: 058
     Dates: start: 20140416, end: 20140416
  3. FOSTIMON [Suspect]
     Active Substance: UROFOLLITROPIN
     Dosage: 1 DF, QD; STRENGTH 150 IU/ML
     Route: 058
     Dates: start: 20140409, end: 20140415

REACTIONS (3)
  - Dyspnoea [Recovered/Resolved]
  - Ovarian hyperstimulation syndrome [Recovered/Resolved]
  - Ascites [Recovered/Resolved]

NARRATIVE: CASE EVENT DATE: 20140506
